FAERS Safety Report 14081344 (Version 2)
Quarter: 2017Q4

REPORT INFORMATION
  Report Type: Spontaneous
  Country: US (occurrence: US)
  Receive Date: 20171012
  Receipt Date: 20171102
  Transmission Date: 20180321
  Serious: Yes (Hospitalization)
  Sender: FDA-Public Use
  Company Number: US-ACTELION-A-US2017-158892

PATIENT
  Age: 26 Year
  Sex: Male
  Weight: 73.47 kg

DRUGS (1)
  1. VELETRI [Suspect]
     Active Substance: EPOPROSTENOL
     Indication: PULMONARY ARTERIAL HYPERTENSION
     Dosage: 6 NG/KG, PER MIN
     Route: 042

REACTIONS (4)
  - Skin discolouration [Unknown]
  - Loss of consciousness [Unknown]
  - Catheter site haemorrhage [Unknown]
  - Suicide attempt [Unknown]
